FAERS Safety Report 23388810 (Version 5)
Quarter: 2024Q1

REPORT INFORMATION
  Report Type: Spontaneous
  Country: PL (occurrence: PL)
  Receive Date: 20240110
  Receipt Date: 20240221
  Transmission Date: 20240410
  Serious: Yes (Hospitalization, Other)
  Sender: FDA-Public Use
  Company Number: PL-Orion Corporation ORION PHARMA-TREX2024-0001

PATIENT
  Sex: Male

DRUGS (2)
  1. METHOTREXATE SODIUM [Suspect]
     Active Substance: METHOTREXATE SODIUM
     Indication: Rheumatoid arthritis
     Dosage: 6 DF, WEEKLY
  2. METHOTREXATE SODIUM [Suspect]
     Active Substance: METHOTREXATE SODIUM
     Indication: Rheumatoid arthritis
     Dosage: 6 DF, WEEKLY

REACTIONS (7)
  - Disease progression [Not Recovered/Not Resolved]
  - Ischaemic stroke [Not Recovered/Not Resolved]
  - Epilepsy [Not Recovered/Not Resolved]
  - Ischaemia [Not Recovered/Not Resolved]
  - Product complaint [Unknown]
  - Product formulation issue [Unknown]
  - Product substitution issue [Unknown]
